FAERS Safety Report 17278315 (Version 1)
Quarter: 2020Q1

REPORT INFORMATION
  Report Type: Spontaneous
  Country: US (occurrence: US)
  Receive Date: 20200116
  Receipt Date: 20200116
  Transmission Date: 20200409
  Serious: No
  Sender: FDA-Public Use
  Company Number: US-INCYTE CORPORATION-2020IN000088

PATIENT

DRUGS (1)
  1. JAKAFI [Suspect]
     Active Substance: RUXOLITINIB
     Indication: MYELOFIBROSIS
     Dosage: 15 MILLIGRAM, QD (10MG TABLET, 1 TABLET IN THE MORNING AND 0.5 TABLET IN THE EVENING)
     Route: 048
     Dates: start: 20161011

REACTIONS (1)
  - Incorrect dose administered [Unknown]
